FAERS Safety Report 5827098-8 (Version None)
Quarter: 2008Q3

REPORT INFORMATION
  Report Type: 
  Country: None (occurrence: None)
  Receive Date: 20080729
  Receipt Date: 20080729
  Transmission Date: 20090109
  Serious: Yes (Disabling, Other)
  Sender: FDA-Public Use
  Company Number: None

PATIENT
  Age: 45 Year
  Sex: Male
  Weight: 68.0396 kg

DRUGS (2)
  1. PHENYTOIN [Suspect]
     Indication: EPILEPSY
     Dosage: 300 MG. AT BEDTIME PO
     Route: 048
     Dates: start: 19920420, end: 20080728
  2. KEPPRA [Suspect]
     Indication: EPILEPSY
     Dosage: 750 MG EVERY 12 HOURS PO
     Route: 048
     Dates: start: 20080620, end: 20080728

REACTIONS (5)
  - BALANCE DISORDER [None]
  - DISORIENTATION [None]
  - INSOMNIA [None]
  - PHARMACEUTICAL PRODUCT COMPLAINT [None]
  - TREMOR [None]
